FAERS Safety Report 8019457-2 (Version None)
Quarter: 2012Q1

REPORT INFORMATION
  Report Type: 
  Country: None (occurrence: None)
  Receive Date: 20120103
  Receipt Date: 20111228
  Transmission Date: 20120608
  Serious: Yes (Death)
  Sender: FDA-Public Use
  Company Number: PHEH2011US06284

PATIENT
  Sex: Female

DRUGS (1)
  1. GLEEVEC [Suspect]
     Indication: ACUTE LYMPHOCYTIC LEUKAEMIA
     Dosage: 800 MG, DAILY
     Route: 048

REACTIONS (4)
  - MULTI-ORGAN FAILURE [None]
  - RESPIRATORY FAILURE [None]
  - PNEUMONIA [None]
  - GRAFT VERSUS HOST DISEASE [None]
